FAERS Safety Report 5599599-1 (Version None)
Quarter: 2008Q1

REPORT INFORMATION
  Report Type: 
  Country: None (occurrence: None)
  Receive Date: 20080123
  Receipt Date: 20071127
  Transmission Date: 20080703
  Serious: No
  Sender: FDA-Public Use
  Company Number: US-BAYER-200715567NA

PATIENT
  Age: 34 Year
  Sex: Female
  Weight: 54 kg

DRUGS (2)
  1. MIRENA [Suspect]
     Indication: CONTRACEPTION
     Route: 015
     Dates: start: 20070220, end: 20071016
  2. ORTHO TRICYCLENS [Concomitant]
     Indication: ORAL CONTRACEPTION

REACTIONS (3)
  - ACNE PUSTULAR [None]
  - GENITAL HAEMORRHAGE [None]
  - MOOD SWINGS [None]
